FAERS Safety Report 22141827 (Version 1)
Quarter: 2023Q1

REPORT INFORMATION
  Report Type: Report from Study
  Country: CA (occurrence: CA)
  Receive Date: 20230327
  Receipt Date: 20230327
  Transmission Date: 20230417
  Serious: Yes (Hospitalization, Other)
  Sender: FDA-Public Use
  Company Number: CA-KOREA IPSEN Pharma-2023-07062

PATIENT
  Age: 45 Year
  Sex: Female

DRUGS (8)
  1. LANREOTIDE ACETATE [Suspect]
     Active Substance: LANREOTIDE ACETATE
     Indication: Neuroendocrine tumour
     Dosage: 120MG
     Route: 058
     Dates: start: 20221125
  2. MAGNESIUM [Concomitant]
     Active Substance: MAGNESIUM
  3. KCL [Concomitant]
     Active Substance: POTASSIUM CHLORIDE
  4. HYDROMORPHONE [Concomitant]
     Active Substance: HYDROMORPHONE
  5. KETOCONAZOLE [Concomitant]
     Active Substance: KETOCONAZOLE
  6. DALTEPARIN [Concomitant]
     Active Substance: DALTEPARIN
  7. ONDANSETRON [Concomitant]
     Active Substance: ONDANSETRON
  8. TYLENOL [Concomitant]
     Active Substance: ACETAMINOPHEN

REACTIONS (4)
  - Pneumonia [Unknown]
  - Pancreatic carcinoma [Unknown]
  - Foot fracture [Unknown]
  - Pituitary-dependent Cushing^s syndrome [Unknown]

NARRATIVE: CASE EVENT DATE: 20230310
